FAERS Safety Report 6744406-4 (Version None)
Quarter: 2010Q2

REPORT INFORMATION
  Report Type: 
  Country: None (occurrence: None)
  Receive Date: 20100527
  Receipt Date: 20100519
  Transmission Date: 20101027
  Serious: Yes (Other)
  Sender: FDA-Public Use
  Company Number: US-PFIZER INC-2010052684

PATIENT
  Age: 24 Year
  Sex: Female
  Weight: 58 kg

DRUGS (2)
  1. CHANTIX [Suspect]
     Indication: NICOTINE DEPENDENCE
     Dosage: 0.5 MG, 2X/DAY
     Dates: start: 20100419, end: 20100425
  2. DESOGESTREL, ESTRADIOL [Concomitant]
     Indication: CONTRACEPTION

REACTIONS (5)
  - AGGRESSION [None]
  - MANIA [None]
  - NERVOUSNESS [None]
  - PARANOIA [None]
  - THINKING ABNORMAL [None]
